FAERS Safety Report 14455027 (Version 3)
Quarter: 2018Q3

REPORT INFORMATION
  Report Type: Spontaneous
  Country: US (occurrence: US)
  Receive Date: 20180129
  Receipt Date: 20180824
  Transmission Date: 20181010
  Serious: Yes (Hospitalization, Other)
  Sender: FDA-Public Use
  Company Number: US-DSJP-DSU-2017-146313

PATIENT

DRUGS (2)
  1. BENICAR [Suspect]
     Active Substance: OLMESARTAN MEDOXOMIL
     Indication: PRODUCT USED FOR UNKNOWN INDICATION
     Dosage: 40 MG, QD
     Route: 048
     Dates: start: 20110105, end: 20170622
  2. BENICAR HCT [Suspect]
     Active Substance: HYDROCHLOROTHIAZIDE\OLMESARTAN MEDOXOMIL
     Indication: PRODUCT USED FOR UNKNOWN INDICATION
     Dosage: 40?25MG, QD
     Route: 048
     Dates: end: 20170622

REACTIONS (8)
  - Gastric ulcer [Unknown]
  - Acute kidney injury [Unknown]
  - Dizziness [Unknown]
  - Intestinal obstruction [Unknown]
  - Sprue-like enteropathy [Recovering/Resolving]
  - Gastritis erosive [Unknown]
  - Impaired gastric emptying [Unknown]
  - Ileus [Unknown]

NARRATIVE: CASE EVENT DATE: 20070102
